FAERS Safety Report 16886441 (Version 5)
Quarter: 2021Q1

REPORT INFORMATION
  Report Type: Spontaneous
  Country: JP (occurrence: JP)
  Receive Date: 20191004
  Receipt Date: 20210323
  Transmission Date: 20210419
  Serious: Yes (Life-Threatening, Hospitalization)
  Sender: FDA-Public Use
  Company Number: JP-ASTRAZENECA-2019SF22851

PATIENT
  Age: 26219 Day
  Sex: Male
  Weight: 67 kg

DRUGS (8)
  1. UBRETID [Concomitant]
     Active Substance: DISTIGMINE BROMIDE
     Indication: BENIGN PROSTATIC HYPERPLASIA
     Route: 048
     Dates: start: 20190716, end: 20190919
  2. TAMSULOSIN HYDROCHLORIDE. [Concomitant]
     Active Substance: TAMSULOSIN HYDROCHLORIDE
     Dosage: 0.2MG UNKNOWN
     Route: 065
  3. EBRANTIL [Suspect]
     Active Substance: URAPIDIL
     Indication: BENIGN PROSTATIC HYPERPLASIA
     Route: 048
     Dates: start: 20190723, end: 20190808
  4. SILODOSIN. [Suspect]
     Active Substance: SILODOSIN
     Indication: BENIGN PROSTATIC HYPERPLASIA
     Route: 048
     Dates: start: 20190809
  5. DEXTROMETHORPHAN HYDROBROMIDE HYDRATE [Suspect]
     Active Substance: DEXTROMETHORPHAN HYDROBROMIDE
     Route: 048
     Dates: start: 20190808, end: 20190815
  6. IMFINZI [Suspect]
     Active Substance: DURVALUMAB
     Indication: NON-SMALL CELL LUNG CANCER
     Route: 042
     Dates: start: 20190905, end: 20190905
  7. IMFINZI [Suspect]
     Active Substance: DURVALUMAB
     Indication: NON-SMALL CELL LUNG CANCER
     Route: 042
     Dates: end: 20200611
  8. IMFINZI [Suspect]
     Active Substance: DURVALUMAB
     Indication: NON-SMALL CELL LUNG CANCER
     Route: 042
     Dates: start: 20190730, end: 20190815

REACTIONS (4)
  - Biliary tract disorder [Unknown]
  - Interstitial lung disease [Recovering/Resolving]
  - Hypothyroidism [Not Recovered/Not Resolved]
  - Liver disorder [Recovering/Resolving]

NARRATIVE: CASE EVENT DATE: 20190815
